FAERS Safety Report 4323349-X (Version None)
Quarter: 2004Q1

REPORT INFORMATION
  Report Type: 
  Country: None (occurrence: None)
  Receive Date: 20040324
  Receipt Date: 20040324
  Transmission Date: 20041129
  Serious: Yes (Other)
  Sender: FDA-Public Use
  Company Number: None

PATIENT
  Age: 25 Year
  Sex: Male
  Weight: 115.6672 kg

DRUGS (2)
  1. WELLBUTRIN XL [Suspect]
     Indication: DEPRESSION
     Dosage: 1 TABLET PER ORAL
     Route: 048
  2. WELLBUTRIN XL [Suspect]
     Indication: FEELING ABNORMAL
     Dosage: 1 TABLET PER ORAL
     Route: 048

REACTIONS (4)
  - DEPRESSION [None]
  - IMPAIRED WORK ABILITY [None]
  - MEMORY IMPAIRMENT [None]
  - THINKING ABNORMAL [None]
